FAERS Safety Report 6125906-7 (Version None)
Quarter: 2009Q1

REPORT INFORMATION
  Report Type: 
  Country: None (occurrence: None)
  Receive Date: 20090318
  Receipt Date: 20090306
  Transmission Date: 20090719
  Serious: Yes (Death, Hospitalization)
  Sender: FDA-Public Use
  Company Number: 2009-00665

PATIENT
  Age: 73 Year
  Sex: Male
  Weight: 86 kg

DRUGS (9)
  1. VELCADE [Suspect]
     Indication: MULTIPLE MYELOMA
     Dosage: 1.3 MG/M2, SUBCUTANEOUS
     Route: 058
     Dates: start: 20090203, end: 20090213
  2. DEXAMETHASONE [Concomitant]
  3. DILTIAZEM [Concomitant]
  4. CLOPIDOGREL [Concomitant]
  5. ATENOLOL [Concomitant]
  6. ATORVASTATIN CALCIUM [Concomitant]
  7. VALACYCLOVIR [Concomitant]
  8. OMEPRAZOLE [Concomitant]
  9. MYCOSTATIN [Concomitant]

REACTIONS (7)
  - DIALYSIS [None]
  - GENERAL PHYSICAL HEALTH DETERIORATION [None]
  - INCORRECT ROUTE OF DRUG ADMINISTRATION [None]
  - PNEUMONIA [None]
  - RENAL FAILURE [None]
  - RESPIRATORY FAILURE [None]
  - SEPTIC SHOCK [None]
